FAERS Safety Report 8901154 (Version 2)
Quarter: 2012Q4

REPORT INFORMATION
  Report Type: Report from Study
  Country: US (occurrence: US)
  Receive Date: 20121109
  Receipt Date: 20121122
  Transmission Date: 20130627
  Serious: Yes (Death)
  Sender: FDA-Public Use
  Company Number: US-ROCHE-CID000000002221937

PATIENT
  Sex: Male
  Weight: 85.35 kg

DRUGS (4)
  1. VEMURAFENIB [Suspect]
     Indication: MALIGNANT MELANOMA
     Route: 048
     Dates: start: 201112, end: 20121008
  2. LYRICA [Concomitant]
     Route: 048
  3. MORPHINE [Concomitant]
     Route: 048
  4. NEURONTIN [Concomitant]
     Route: 048

REACTIONS (1)
  - Malignant melanoma [Fatal]
